FAERS Safety Report 5430937-6 (Version None)
Quarter: 2007Q3

REPORT INFORMATION
  Report Type: 
  Country: None (occurrence: None)
  Receive Date: 20070830
  Receipt Date: 20070820
  Transmission Date: 20080115
  Serious: No
  Sender: FDA-Public Use
  Company Number: US-BAXTER-2007BH007267

PATIENT

DRUGS (1)
  1. TISSUCOL/TISSEEL KIT STIM4 [Suspect]
     Indication: HAEMOSTASIS
     Dosage: DOSE UNIT:UNKNOWN
     Route: 061
     Dates: start: 20070628, end: 20070628

REACTIONS (2)
  - POSTOPERATIVE WOUND INFECTION [None]
  - WOUND INFECTION [None]
